FAERS Safety Report 25382731 (Version 3)
Quarter: 2025Q2

REPORT INFORMATION
  Report Type: Report from Study
  Country: CA (occurrence: CA)
  Receive Date: 20250602
  Receipt Date: 20250616
  Transmission Date: 20250717
  Serious: Yes (Hospitalization)
  Sender: NOVARTIS
  Company Number: CA-002147023-NVSC2025CA086694

PATIENT
  Age: 47 Year
  Sex: Male

DRUGS (2)
  1. KESIMPTA [Suspect]
     Active Substance: OFATUMUMAB
     Indication: Groin infection
     Dosage: 20 MG, QMO
     Route: 058
     Dates: start: 20250128
  2. KESIMPTA [Suspect]
     Active Substance: OFATUMUMAB
     Indication: Nervous system disorder

REACTIONS (5)
  - Groin abscess [Unknown]
  - Psoriasis [Unknown]
  - Arthritis [Unknown]
  - Musculoskeletal stiffness [Unknown]
  - Product prescribing issue [Unknown]
